FAERS Safety Report 21229129 (Version 2)
Quarter: 2022Q4

REPORT INFORMATION
  Report Type: Spontaneous
  Country: CN (occurrence: CN)
  Receive Date: 20220818
  Receipt Date: 20221004
  Transmission Date: 20230113
  Serious: Yes (Hospitalization, Other)
  Sender: FDA-Public Use
  Company Number: CN-SA-2022SA330909

PATIENT
  Age: 85 Year
  Sex: Male

DRUGS (4)
  1. DUPILUMAB [Suspect]
     Active Substance: DUPILUMAB
     Indication: Dermatitis atopic
     Dosage: 600 MG
     Route: 058
     Dates: start: 20210611, end: 20210611
  2. LOSARTAN POTASSIUM [Concomitant]
     Active Substance: LOSARTAN POTASSIUM
     Indication: Hypertension
  3. FINASTERIDE [Concomitant]
     Active Substance: FINASTERIDE
     Indication: Benign prostatic hyperplasia
  4. THALIDOMIDE [Concomitant]
     Active Substance: THALIDOMIDE
     Indication: Dermatitis atopic
     Dosage: UNK UNK, PRN

REACTIONS (7)
  - Vascular purpura [Recovered/Resolved]
  - Drug eruption [Recovered/Resolved]
  - Petechiae [Recovered/Resolved]
  - Ecchymosis [Recovered/Resolved]
  - Rash [Recovered/Resolved]
  - Type III immune complex mediated reaction [Recovered/Resolved]
  - Toxicity to various agents [Recovered/Resolved]
